FAERS Safety Report 10937028 (Version 2)
Quarter: 2015Q2

REPORT INFORMATION
  Report Type: Spontaneous
  Country: US (occurrence: US)
  Receive Date: 20150321
  Receipt Date: 20150525
  Transmission Date: 20150821
  Serious: No
  Sender: FDA-Public Use
  Company Number: US-JNJFOC-20130801663

PATIENT
  Age: 26 Year
  Sex: Female
  Weight: 63.5 kg

DRUGS (3)
  1. SUBOXONE [Concomitant]
     Active Substance: BUPRENORPHINE HYDROCHLORIDE\NALOXONE HYDROCHLORIDE
     Indication: DRUG DEPENDENCE
     Route: 048
     Dates: start: 2010
  2. TOPAMAX [Suspect]
     Active Substance: TOPIRAMATE
     Indication: DEPRESSION
     Route: 048
     Dates: start: 201307, end: 20130729
  3. TOPAMAX [Suspect]
     Active Substance: TOPIRAMATE
     Indication: ANXIETY
     Route: 048
     Dates: start: 201307, end: 20130729

REACTIONS (2)
  - Drug screen false positive [Recovered/Resolved]
  - Product use issue [Recovered/Resolved]

NARRATIVE: CASE EVENT DATE: 201307
